FAERS Safety Report 21915523 (Version 6)
Quarter: 2024Q2

REPORT INFORMATION
  Report Type: Other
  Country: DE (occurrence: None)
  Receive Date: 20230126
  Receipt Date: 20240509
  Transmission Date: 20240716
  Serious: No
  Sender: FDA-Public Use
  Company Number: DE-ROCHE-3271508

PATIENT
  Age: 51 Year
  Sex: Male
  Weight: 83 kg

DRUGS (9)
  1. OCREVUS [Suspect]
     Active Substance: OCRELIZUMAB
     Indication: Relapsing multiple sclerosis
     Route: 042
     Dates: start: 20220207, end: 20220221
  2. OCREVUS [Suspect]
     Active Substance: OCRELIZUMAB
     Route: 042
     Dates: start: 20220905
  3. NATALIZUMAB [Suspect]
     Active Substance: NATALIZUMAB
     Indication: Relapsing multiple sclerosis
     Dosage: MOST RECENT DOSE RECEIVED ON 10/DEC/2021
     Route: 042
     Dates: start: 20211112
  4. INFLUVAC TETRA [Concomitant]
     Active Substance: INFLUENZA VIRUS VACCINE QUADRIVALENT TYPE A+B
     Indication: Prophylaxis
     Route: 030
     Dates: start: 20230103, end: 20230103
  5. MODERNA COVID-19 VACCINE [Concomitant]
     Active Substance: ELASOMERAN
     Indication: COVID-19 immunisation
     Route: 030
     Dates: start: 20211217, end: 20211217
  6. FSME [Concomitant]
     Indication: Immunisation
     Route: 030
     Dates: start: 20220617, end: 20220617
  7. FSME [Concomitant]
     Route: 030
     Dates: start: 20211214, end: 20211214
  8. CIMETIDIN [Concomitant]
     Indication: Premedication
     Route: 042
     Dates: start: 20220207, end: 20220221
  9. SHINGRIX [Concomitant]
     Active Substance: RECOMBINANT VARICELLA ZOSTER VIRUS (VZV) GLYCOPROTEIN E
     Indication: Immunisation
     Route: 030
     Dates: start: 20211227, end: 20211227

REACTIONS (14)
  - Red blood cells urine positive [Recovered/Resolved]
  - Monocyte count increased [Recovered/Resolved]
  - Monocyte count increased [Recovered/Resolved]
  - Impaired healing [Recovered/Resolved]
  - COVID-19 [Recovered/Resolved with Sequelae]
  - Arthritis [Unknown]
  - Gamma-glutamyltransferase increased [Recovered/Resolved]
  - Gamma-glutamyltransferase increased [Recovered/Resolved]
  - Red cell distribution width increased [Recovered/Resolved]
  - Basophil count increased [Recovered/Resolved]
  - Lymphocyte count increased [Recovered/Resolved]
  - B-lymphocyte count decreased [Unknown]
  - Osteoarthritis [Unknown]
  - Tension headache [Unknown]

NARRATIVE: CASE EVENT DATE: 20221101
